FAERS Safety Report 9681988 (Version 1)
Quarter: 2013Q4

REPORT INFORMATION
  Report Type: Spontaneous
  Country: FR (occurrence: FR)
  Receive Date: 20131111
  Receipt Date: 20131111
  Transmission Date: 20140711
  Serious: Yes (Hospitalization, Other)
  Sender: FDA-Public Use
  Company Number: FR-PFIZER INC-2013314541

PATIENT
  Age: 65 Year
  Sex: Female

DRUGS (6)
  1. EFFEXOR LP [Suspect]
     Dosage: 37.5 MG, 2X/DAY
     Route: 048
     Dates: end: 201302
  2. EFFEXOR LP [Suspect]
     Dosage: 75 MG, 2X/DAY
     Route: 048
     Dates: start: 201302, end: 201310
  3. XANAX [Suspect]
     Dosage: 0.25 MG, 2X/DAY
     Route: 048
  4. PROZAC [Suspect]
     Dosage: 1 DF, 2X/DAY
     Route: 048
     Dates: end: 201307
  5. DEPAMIDE [Suspect]
     Dosage: 300 MG, 1X/DAY
     Route: 048
  6. NOCTAMIDE [Concomitant]
     Dosage: 1 DF, 1X/DAY
     Dates: end: 201307

REACTIONS (6)
  - Interstitial lung disease [Not Recovered/Not Resolved]
  - Dyspnoea [Not Recovered/Not Resolved]
  - Adenocarcinoma of colon [Unknown]
  - Peritonitis [Unknown]
  - Septic shock [Unknown]
  - Acute respiratory distress syndrome [Unknown]
